FAERS Safety Report 7644937-9 (Version None)
Quarter: 2011Q3

REPORT INFORMATION
  Report Type: 
  Country: None (occurrence: None)
  Receive Date: 20110729
  Receipt Date: 20110712
  Transmission Date: 20111222
  Serious: Yes (Death)
  Sender: FDA-Public Use
  Company Number: US-GLAXOSMITHKLINE-A0877348A

PATIENT
  Age: 67 Year
  Sex: Male
  Weight: 129.5 kg

DRUGS (1)
  1. AVANDIA [Suspect]
     Indication: DIABETES MELLITUS
     Dosage: 4MG UNKNOWN
     Route: 048
     Dates: start: 20020101, end: 20070712

REACTIONS (3)
  - ARTERIOSCLEROSIS [None]
  - CARDIAC ARREST [None]
  - MYOCARDIAL INFARCTION [None]
